FAERS Safety Report 5600852-3 (Version None)
Quarter: 2008Q1

REPORT INFORMATION
  Report Type: 
  Country: None (occurrence: None)
  Receive Date: 20080122
  Receipt Date: 20080122
  Transmission Date: 20080703
  Serious: Yes (Other)
  Sender: FDA-Public Use
  Company Number: None

PATIENT
  Age: 32 Year
  Sex: Female
  Weight: 51.7101 kg

DRUGS (1)
  1. ORTHO CYCLEN-21 [Suspect]
     Indication: CONTRACEPTION

REACTIONS (1)
  - ACNE [None]
